FAERS Safety Report 7854977 (Version 3)
Quarter: 2013Q4

REPORT INFORMATION
  Report Type: Report from Study
  Country: CA (occurrence: CA)
  Receive Date: 20110314
  Receipt Date: 20131204
  Transmission Date: 20140711
  Serious: Yes (Other)
  Sender: FDA-Public Use
  Company Number: CA-JNJFOC-20110301234

PATIENT
  Age: 57 Year
  Sex: Female
  Weight: 99.79 kg

DRUGS (5)
  1. STELARA [Suspect]
     Indication: PSORIASIS
     Route: 058
     Dates: start: 20090810, end: 20101125
  2. PREDNISONE [Concomitant]
  3. AMOXICILLIN [Concomitant]
  4. METFORMIN [Concomitant]
  5. CILAZAPRIL [Concomitant]

REACTIONS (1)
  - Hypersensitivity vasculitis [Recovered/Resolved]
